FAERS Safety Report 9490562 (Version 1)
Quarter: 2013Q3

REPORT INFORMATION
  Report Type: Spontaneous
  Country: US (occurrence: None)
  Receive Date: 20130827
  Receipt Date: 20130827
  Transmission Date: 20140515
  Serious: No
  Sender: FDA-Public Use
  Company Number: None

PATIENT
  Age: 65 Year
  Sex: Male
  Weight: 88.45 kg

DRUGS (6)
  1. SIMVASTATIN [Suspect]
     Indication: BLOOD CHOLESTEROL INCREASED
     Dosage: 1 TABLET EVING  BEDTIME  MOUTH
     Route: 048
     Dates: start: 20130524, end: 20130804
  2. LOSARTAN [Concomitant]
  3. CARVEDILOL [Concomitant]
  4. AMLOPIPINE BESYLAT [Concomitant]
  5. TEKTURNA [Concomitant]
  6. SOLARAY SPECTRO MULTI VITAMIN [Concomitant]

REACTIONS (1)
  - Amnesia [None]
